FAERS Safety Report 6401771-5 (Version None)
Quarter: 2009Q4

REPORT INFORMATION
  Report Type: 
  Country: None (occurrence: None)
  Receive Date: 20091015
  Receipt Date: 20091006
  Transmission Date: 20100525
  Serious: Yes (Hospitalization)
  Sender: FDA-Public Use
  Company Number: JP-BAYER-200910650BYL

PATIENT
  Age: 75 Year
  Sex: Male
  Weight: 55 kg

DRUGS (5)
  1. NEXAVAR [Suspect]
     Indication: RENAL CELL CARCINOMA STAGE IV
     Dosage: UNIT DOSE: 200 MG
     Route: 048
     Dates: start: 20081113, end: 20090128
  2. RESMIT [Concomitant]
     Route: 048
     Dates: start: 20081113
  3. MUCODYNE [Concomitant]
     Route: 048
     Dates: start: 20081113
  4. VITAMEDIN [Concomitant]
     Route: 048
     Dates: start: 20081113
  5. CEPHADOL [Concomitant]
     Route: 048
     Dates: start: 20081113

REACTIONS (4)
  - CEREBRAL INFARCTION [None]
  - HYPERLIPASAEMIA [None]
  - HYPOPHOSPHATAEMIA [None]
  - PALMAR-PLANTAR ERYTHRODYSAESTHESIA SYNDROME [None]
